FAERS Safety Report 4443338-4 (Version None)
Quarter: 2004Q3

REPORT INFORMATION
  Report Type: 
  Country: None (occurrence: None)
  Receive Date: 20040728
  Receipt Date: 20040518
  Transmission Date: 20050211
  Serious: No
  Sender: FDA-Public Use
  Company Number: USA040567938

PATIENT
  Age: 3 Year
  Sex: Male

DRUGS (2)
  1. STRATTERA [Suspect]
     Indication: PSYCHOMOTOR HYPERACTIVITY
     Dosage: 18 MG/1 DAY
     Dates: start: 20030501
  2. TUSSI-12 [Concomitant]

REACTIONS (10)
  - ABNORMAL BEHAVIOUR [None]
  - CONSTIPATION [None]
  - DRUG EFFECT DECREASED [None]
  - FAECAL INCONTINENCE [None]
  - INSOMNIA [None]
  - IRRITABILITY [None]
  - MOOD ALTERED [None]
  - MOOD SWINGS [None]
  - NEGATIVISM [None]
  - PSYCHOMOTOR HYPERACTIVITY [None]
